FAERS Safety Report 10357299 (Version 1)
Quarter: 2014Q3

REPORT INFORMATION
  Report Type: Spontaneous
  Country: US (occurrence: US)
  Receive Date: 20140801
  Receipt Date: 20140801
  Transmission Date: 20150326
  Serious: Yes (Hospitalization, Other)
  Sender: FDA-Public Use
  Company Number: US-PFIZER INC-2014213443

PATIENT
  Age: 53 Year
  Sex: Male

DRUGS (4)
  1. LIPITOR [Concomitant]
     Active Substance: ATORVASTATIN CALCIUM
     Dosage: UNK
  2. ADVAIR HFA [Suspect]
     Active Substance: FLUTICASONE PROPIONATE\SALMETEROL XINAFOATE
     Indication: ASTHMA
     Dosage: 1 PUFF TWICE PER DAY
     Route: 045
     Dates: start: 2004
  3. INSULIN [Concomitant]
     Active Substance: INSULIN NOS
     Dosage: UNK
  4. CELEBREX [Suspect]
     Active Substance: CELECOXIB
     Indication: ARTHRITIS
     Dosage: UNK

REACTIONS (16)
  - Respiratory fume inhalation disorder [Unknown]
  - Myocardial infarction [Recovering/Resolving]
  - Atrioventricular block [Unknown]
  - Renal disorder [Recovered/Resolved]
  - Drug administration error [Unknown]
  - Arthropathy [Unknown]
  - Feeling abnormal [Unknown]
  - Device material issue [Unknown]
  - Arterial occlusive disease [Unknown]
  - Arrhythmia [Unknown]
  - Dry throat [Unknown]
  - Arthritis [Unknown]
  - Renal failure [Recovered/Resolved]
  - Cardiac disorder [Unknown]
  - Asthma [Unknown]
  - Environmental exposure [Unknown]

NARRATIVE: CASE EVENT DATE: 2008
